FAERS Safety Report 16802056 (Version 1)
Quarter: 2019Q3

REPORT INFORMATION
  Report Type: Spontaneous
  Country: US (occurrence: US)
  Receive Date: 20190912
  Receipt Date: 20190912
  Transmission Date: 20191005
  Serious: Yes (Hospitalization, Other)
  Sender: FDA-Public Use
  Company Number: US-PFIZER INC-2019107924

PATIENT
  Sex: Female
  Weight: 102.9 kg

DRUGS (3)
  1. LYRICA [Suspect]
     Active Substance: PREGABALIN
     Indication: NEUROPATHY PERIPHERAL
  2. LYRICA [Suspect]
     Active Substance: PREGABALIN
     Indication: POLYNEUROPATHY
  3. LYRICA [Suspect]
     Active Substance: PREGABALIN
     Indication: DIABETIC NEUROPATHY
     Dosage: 75 MG, 3X/DAY (TAKE 1 CAP TID)
     Route: 048

REACTIONS (17)
  - Intervertebral disc degeneration [Unknown]
  - Gait inability [Unknown]
  - Incontinence [Unknown]
  - Vomiting [Unknown]
  - Staphylococcal infection [Unknown]
  - Memory impairment [Unknown]
  - Musculoskeletal pain [Unknown]
  - Spinal disorder [Unknown]
  - Neck pain [Unknown]
  - Viral infection [Unknown]
  - Abdominal pain upper [Unknown]
  - Small intestinal obstruction [Unknown]
  - Fall [Unknown]
  - Abdominal distension [Unknown]
  - Disturbance in attention [Unknown]
  - Peroneal nerve palsy [Unknown]
  - Degenerative bone disease [Unknown]
